FAERS Safety Report 20135350 (Version 3)
Quarter: 2022Q1

REPORT INFORMATION
  Report Type: Report from Study
  Country: CO (occurrence: CO)
  Receive Date: 20211201
  Receipt Date: 20220228
  Transmission Date: 20220423
  Serious: Yes (Death, Other)
  Sender: FDA-Public Use
  Company Number: CO-NOVARTISPH-NVSC2021CO273242

PATIENT
  Age: 77 Year
  Sex: Female
  Weight: 67 kg

DRUGS (6)
  1. KISQALI [Suspect]
     Active Substance: RIBOCICLIB
     Indication: Breast cancer metastatic
     Dosage: 600 MG, QD
     Route: 048
     Dates: start: 202102, end: 202110
  2. KISQALI [Suspect]
     Active Substance: RIBOCICLIB
     Dosage: 400 MG, QD (200 MG TABLET)
     Route: 048
     Dates: start: 202110
  3. KISQALI [Suspect]
     Active Substance: RIBOCICLIB
     Dosage: 400 MG, QD
     Route: 048
  4. FEMARA [Suspect]
     Active Substance: LETROZOLE
     Indication: Breast cancer
     Dosage: 2.5 MG, QD
     Route: 048
     Dates: start: 202102, end: 202110
  5. FEMARA [Suspect]
     Active Substance: LETROZOLE
     Dosage: UNK
     Route: 048
     Dates: start: 202111
  6. ASPIRIN [Concomitant]
     Active Substance: ASPIRIN
     Indication: Infarction
     Dosage: 100 MG, QD (MORE THAN 40 YEARS)
     Route: 048

REACTIONS (2)
  - Death [Fatal]
  - Parkinson^s disease [Unknown]

NARRATIVE: CASE EVENT DATE: 20220109
